FAERS Safety Report 4344954-0 (Version None)
Quarter: 2004Q2

REPORT INFORMATION
  Report Type: 
  Country: None (occurrence: None)
  Receive Date: 20040420
  Receipt Date: 20040413
  Transmission Date: 20050107
  Serious: Yes (Death, Congenital Anomaly)
  Sender: FDA-Public Use
  Company Number: 2004SE00066

PATIENT
  Age: 2 Day
  Sex: Male

DRUGS (1)
  1. AMIAS [Suspect]
     Dosage: 4 MG DAILY TPL
     Route: 061

REACTIONS (13)
  - ANGIOTENSIN CONVERTING ENZYME INHIBITOR FOETOPATHY [None]
  - DELAYED FONTANELLE CLOSURE [None]
  - HEPATIC NECROSIS [None]
  - MATERNAL DRUGS AFFECTING FOETUS [None]
  - NEONATAL ASPHYXIA [None]
  - NEONATAL RESPIRATORY DISTRESS SYNDROME [None]
  - OLIGOHYDRAMNIOS [None]
  - PERITONEAL DIALYSIS [None]
  - POSTURE ABNORMAL [None]
  - PREMATURE BABY [None]
  - RENAL AGENESIS [None]
  - RENAL CORTICAL NECROSIS [None]
  - RENAL VEIN THROMBOSIS [None]
